FAERS Safety Report 7141891-3 (Version None)
Quarter: 2010Q4

REPORT INFORMATION
  Report Type: 
  Country: None (occurrence: None)
  Receive Date: 20101202
  Receipt Date: 20101202
  Transmission Date: 20110411
  Serious: Yes (Hospitalization)
  Sender: FDA-Public Use
  Company Number: None

PATIENT
  Age: 58 Year
  Sex: Female
  Weight: 80.7403 kg

DRUGS (2)
  1. LISTERINE VANILLA MINT 1 LITER [Suspect]
     Indication: DENTAL DISORDER PROPHYLAXIS
     Dosage: MOUTH FULL MONDAY; MOUTH FULL TUESDAY
     Dates: start: 20101011
  2. LISTERINE VANILLA MINT 1 LITER [Suspect]
     Indication: DENTAL DISORDER PROPHYLAXIS
     Dosage: MOUTH FULL MONDAY; MOUTH FULL TUESDAY
     Dates: start: 20101012

REACTIONS (1)
  - UPPER RESPIRATORY TRACT INFECTION [None]
